FAERS Safety Report 9132360 (Version 1)
Quarter: 2013Q1

REPORT INFORMATION
  Report Type: Spontaneous
  Country: IT (occurrence: IT)
  Receive Date: 20130301
  Receipt Date: 20130301
  Transmission Date: 20140127
  Serious: Yes (Other)
  Sender: FDA-Public Use
  Company Number: IT-FRI-1000042971

PATIENT
  Age: 48 Year
  Sex: Male

DRUGS (3)
  1. FOSFOMYCIN [Suspect]
     Indication: URINARY TRACT INFECTION BACTERIAL
     Dosage: 1 DF
     Route: 048
     Dates: start: 20130128, end: 20130129
  2. LANSOPRAZOLO [Concomitant]
  3. VOLTAREN [Concomitant]
     Indication: ARTHRALGIA
     Dosage: 75 MG

REACTIONS (2)
  - Hypersensitivity [Recovering/Resolving]
  - Urticaria [Recovering/Resolving]
